FAERS Safety Report 15495196 (Version 1)
Quarter: 2018Q4

REPORT INFORMATION
  Report Type: Spontaneous
  Country: US (occurrence: US)
  Receive Date: 20181012
  Receipt Date: 20181012
  Transmission Date: 20190205
  Serious: Yes (Other)
  Sender: FDA-Public Use
  Company Number: PHEH2018US042460

PATIENT
  Sex: Female

DRUGS (1)
  1. BUMETANIDE TABLETS, USP [Suspect]
     Active Substance: BUMETANIDE
     Indication: PRODUCT USED FOR UNKNOWN INDICATION
     Dosage: UNK
     Route: 065

REACTIONS (5)
  - Dry eye [Unknown]
  - Visual impairment [Unknown]
  - Nephrolithiasis [Unknown]
  - Headache [Unknown]
  - Tinnitus [Unknown]
